FAERS Safety Report 8436726-2 (Version None)
Quarter: 2012Q2

REPORT INFORMATION
  Report Type: 
  Country: None (occurrence: None)
  Receive Date: 20120614
  Receipt Date: 20120605
  Transmission Date: 20120825
  Serious: Yes (Disabling)
  Sender: FDA-Public Use
  Company Number: US-MERCK-0303USA01900

PATIENT
  Sex: Female

DRUGS (8)
  1. FOSAMAX [Suspect]
     Route: 048
     Dates: start: 19980101, end: 20030101
  2. ASPIRIN [Concomitant]
     Route: 065
  3. ACCOLATE [Concomitant]
     Route: 065
  4. FOSAMAX [Suspect]
     Indication: OSTEOPOROSIS
     Route: 048
     Dates: start: 19980101, end: 20030101
  5. FOSAMAX [Suspect]
     Route: 048
  6. PAXIL [Concomitant]
     Route: 065
  7. [THERAPY UNSPECIFIED] [Concomitant]
     Route: 065
  8. CALCIUM (UNSPECIFIED) [Concomitant]
     Route: 065

REACTIONS (4)
  - OSTEOPOROSIS [None]
  - STRESS FRACTURE [None]
  - DRUG INEFFECTIVE [None]
  - FEMUR FRACTURE [None]
